FAERS Safety Report 14436765 (Version 1)
Quarter: 2018Q1

REPORT INFORMATION
  Report Type: Spontaneous
  Country: US (occurrence: US)
  Receive Date: 20180125
  Receipt Date: 20180125
  Transmission Date: 20180509
  Serious: No
  Sender: FDA-Public Use
  Company Number: US-HETERO CORPORATE-HET2018US00044

PATIENT
  Age: 60 Year
  Sex: Female

DRUGS (1)
  1. IRBESARTAN. [Suspect]
     Active Substance: IRBESARTAN
     Indication: HYPERTENSION
     Dosage: UNK, QD (1/2 TABLET)
     Route: 065
     Dates: end: 20171129

REACTIONS (6)
  - Wrong technique in product usage process [Unknown]
  - Sinus disorder [None]
  - Sinusitis [Recovered/Resolved]
  - Incorrect dose administered [Unknown]
  - Hypersensitivity [Recovered/Resolved]
  - Cough [Recovered/Resolved]
